FAERS Safety Report 12479089 (Version 2)
Quarter: 2016Q2

REPORT INFORMATION
  Report Type: Spontaneous
  Country: IN (occurrence: IN)
  Receive Date: 20160620
  Receipt Date: 20160622
  Transmission Date: 20160815
  Serious: Yes (Life-Threatening, Hospitalization)
  Sender: FDA-Public Use
  Company Number: IN-ACCORD-041669

PATIENT
  Age: 2 Year
  Sex: Female

DRUGS (4)
  1. MERCAPTOPURINE/MERCAPTOPURINE ANHYDROUS [Concomitant]
     Indication: ACUTE LYMPHOCYTIC LEUKAEMIA
     Dosage: RECEIVED AS PHASE 1B OF INDUCTION THERAPY
  2. METHOTREXATE [Suspect]
     Active Substance: METHOTREXATE
     Indication: ACUTE LYMPHOCYTIC LEUKAEMIA
     Dosage: INITIALLY RECEIVED AS PHASE 1A INDUCTION THERAPY??RECEIVED AS PHASE 1B OF INDUCTION THERAPY.
     Route: 037
  3. CYCLOPHOSPHAMIDE/CYCLOPHOSPHAMIDE MONOHYDRATE [Concomitant]
     Indication: ACUTE LYMPHOCYTIC LEUKAEMIA
     Dosage: RECEIVED AS PHASE 1B OF INDUCTION THERAPY
  4. CYTARABINE/CYTARABINE HYDROCHLORIDE/CYTARABINE OCFOSFATE [Concomitant]
     Indication: ACUTE LYMPHOCYTIC LEUKAEMIA
     Dosage: RECEIVED AS PHASE 1B OF INDUCTION THERAPY

REACTIONS (4)
  - Intraventricular haemorrhage [Recovered/Resolved with Sequelae]
  - Generalised tonic-clonic seizure [Recovered/Resolved]
  - Vomiting [Recovered/Resolved]
  - Subarachnoid haemorrhage [Recovered/Resolved]
